FAERS Safety Report 16334722 (Version 4)
Quarter: 2019Q3

REPORT INFORMATION
  Report Type: Report from Study
  Country: US (occurrence: US)
  Receive Date: 20190520
  Receipt Date: 20190802
  Transmission Date: 20191004
  Serious: No
  Sender: FDA-Public Use
  Company Number: PHEH2019US021309

PATIENT
  Sex: Male
  Weight: 68 kg

DRUGS (1)
  1. BRIMONIDINE [Suspect]
     Active Substance: BRIMONIDINE TARTRATE
     Indication: GLAUCOMA
     Dosage: UNK UNK, BID
     Route: 047

REACTIONS (3)
  - Drug hypersensitivity [Recovered/Resolved]
  - Ocular discomfort [Recovered/Resolved]
  - Eye irritation [Unknown]
